FAERS Safety Report 7451042-3 (Version None)
Quarter: 2011Q2

REPORT INFORMATION
  Report Type: 
  Country: None (occurrence: None)
  Receive Date: 20110502
  Receipt Date: 20110427
  Transmission Date: 20111010
  Serious: Yes (Other)
  Sender: FDA-Public Use
  Company Number: BR-ROCHE-773889

PATIENT
  Sex: Female

DRUGS (1)
  1. RIVOTRIL [Suspect]
     Dosage: THERAPY STARTED: 1YEAR AGO
     Route: 048

REACTIONS (1)
  - BRAIN NEOPLASM [None]
